FAERS Safety Report 9736821 (Version 2)
Quarter: 2014Q1

REPORT INFORMATION
  Report Type: Spontaneous
  Country: US (occurrence: US)
  Receive Date: 20131206
  Receipt Date: 20140326
  Transmission Date: 20141002
  Serious: No
  Sender: FDA-Public Use
  Company Number: US-BIOGENIDEC-2013BI098591

PATIENT
  Age: 41 Year
  Sex: Male
  Weight: 70 kg

DRUGS (7)
  1. TECFIDERA [Suspect]
     Indication: MULTIPLE SCLEROSIS
     Route: 048
     Dates: start: 201308
  2. TECFIDERA [Suspect]
     Indication: MULTIPLE SCLEROSIS
     Route: 048
     Dates: start: 201310
  3. NUVIGIL [Concomitant]
     Indication: PRODUCT USED FOR UNKNOWN INDICATION
  4. FISH OIL [Concomitant]
  5. TOVIAZ [Concomitant]
  6. VITAMIN B12 [Concomitant]
  7. VITAMIN D3 [Concomitant]

REACTIONS (4)
  - Fatigue [Unknown]
  - Cystitis [Unknown]
  - Flushing [Recovered/Resolved]
  - Gastrointestinal disorder [Unknown]
